FAERS Safety Report 23134836 (Version 1)
Quarter: 2023Q4

REPORT INFORMATION
  Report Type: Spontaneous
  Country: FR (occurrence: FR)
  Receive Date: 20231101
  Receipt Date: 20231101
  Transmission Date: 20240109
  Serious: Yes (Hospitalization)
  Sender: FDA-Public Use
  Company Number: None

PATIENT
  Age: 48 Year
  Sex: Female
  Weight: 41.2 kg

DRUGS (3)
  1. ONDANSETRON [Suspect]
     Active Substance: ONDANSETRON
     Indication: Nausea
     Dosage: 8 MILLIGRAM, BID
     Route: 042
     Dates: start: 20230824, end: 20230824
  2. MESNA [Suspect]
     Active Substance: MESNA
     Indication: Systemic lupus erythematosus
     Dosage: 830 MILLIGRAM (1 TOTAL)
     Route: 042
     Dates: start: 20230824, end: 20230824
  3. CYCLOPHOSPHAMIDE [Suspect]
     Active Substance: CYCLOPHOSPHAMIDE
     Indication: Systemic lupus erythematosus
     Dosage: 830 MILLIGRAM (1 TOTAL)
     Route: 042
     Dates: start: 20230824, end: 20230824

REACTIONS (4)
  - Nausea [Recovered/Resolved]
  - Diarrhoea [Recovered/Resolved]
  - Pyrexia [Recovered/Resolved]
  - Headache [Recovered/Resolved]

NARRATIVE: CASE EVENT DATE: 20230826
